FAERS Safety Report 14949026 (Version 1)
Quarter: 2018Q2

REPORT INFORMATION
  Report Type: Spontaneous
  Country: BE (occurrence: BE)
  Receive Date: 20180529
  Receipt Date: 20180529
  Transmission Date: 20180711
  Serious: Yes (Other)
  Sender: FDA-Public Use
  Company Number: BE-MYLANLABS-2018M1033963

PATIENT
  Age: 29 Year
  Sex: Female

DRUGS (5)
  1. BETAMETHASONE. [Suspect]
     Active Substance: BETAMETHASONE
     Indication: FOETAL HEART RATE INCREASED
     Dosage: 12 MG, UNK
     Route: 030
  2. SALBUTAMOL [Suspect]
     Active Substance: ALBUTEROL
     Indication: FOETAL HEART RATE INCREASED
     Dosage: 20 MG, QD, 10 MG, BID
     Route: 048
  3. SALBUTAMOL [Suspect]
     Active Substance: ALBUTEROL
     Dosage: 30 MG, QD, 10 MG, TID
     Route: 048
  4. BETAMETHASONE. [Suspect]
     Active Substance: BETAMETHASONE
     Dosage: 12 MG, UNK
     Route: 030
  5. SALBUTAMOL [Suspect]
     Active Substance: ALBUTEROL
     Dosage: 10 MG, 5XD, 10 MG 5 TIMES DAILY
     Route: 048

REACTIONS (4)
  - Live birth [Recovered/Resolved]
  - Hypokalaemia [Unknown]
  - Exposure during pregnancy [Recovered/Resolved]
  - Heart rate increased [Unknown]
